FAERS Safety Report 6779066-X (Version None)
Quarter: 2010Q2

REPORT INFORMATION
  Report Type: 
  Country: None (occurrence: None)
  Receive Date: 20100618
  Receipt Date: 20100614
  Transmission Date: 20101027
  Serious: Yes (Other)
  Sender: FDA-Public Use
  Company Number: DK-PFIZER INC-2010057492

PATIENT
  Sex: Female

DRUGS (2)
  1. PROVERA [Suspect]
     Dosage: 5 MG, 2X/DAY
     Dates: start: 20100426, end: 20100503
  2. PROVERA [Suspect]
     Dosage: 5 MG, 1X/DAY
     Dates: start: 20100504, end: 20100505

REACTIONS (4)
  - HEADACHE [None]
  - NECK PAIN [None]
  - RASH [None]
  - SWELLING FACE [None]
